FAERS Safety Report 6261724-7 (Version None)
Quarter: 2009Q3

REPORT INFORMATION
  Report Type: 
  Country: None (occurrence: None)
  Receive Date: 20090709
  Receipt Date: 20090626
  Transmission Date: 20100115
  Serious: Yes (Hospitalization)
  Sender: FDA-Public Use
  Company Number: ES-ELI_LILLY_AND_COMPANY-ES200906006870

PATIENT
  Age: 85 Year
  Sex: Female

DRUGS (6)
  1. FORTEO [Suspect]
     Indication: OSTEOPOROSIS
     Dosage: 20 UG, UNKNOWN
     Route: 058
     Dates: start: 20090609, end: 20090624
  2. METFORMIN HCL [Concomitant]
     Dosage: UNK, UNKNOWN
     Route: 065
  3. MINODIAB [Concomitant]
     Dosage: UNK, UNKNOWN
     Route: 065
  4. PARACETAMOL [Concomitant]
     Dosage: 1 G, UNKNOWN
     Route: 065
  5. MORPHINE SULFATE [Concomitant]
     Dosage: UNK, UNKNOWN
     Route: 065
  6. LORAZEPAM [Concomitant]
     Dosage: UNK, UNKNOWN
     Route: 065

REACTIONS (2)
  - BLOOD PRESSURE INCREASED [None]
  - LACUNAR INFARCTION [None]
